FAERS Safety Report 5742176-X (Version None)
Quarter: 2008Q2

REPORT INFORMATION
  Report Type: 
  Country: None (occurrence: None)
  Receive Date: 20080514
  Receipt Date: 20071019
  Transmission Date: 20081010
  Serious: Yes (Hospitalization, Disabling)
  Sender: FDA-Public Use
  Company Number: US200710005157

PATIENT
  Age: 70 Year
  Sex: Female
  Weight: 92.5 kg

DRUGS (6)
  1. KEFLEX [Suspect]
     Indication: PHARYNGITIS STREPTOCOCCAL
     Dosage: 500 MG, 3/D, ORAL
     Route: 048
     Dates: start: 20070813, end: 20070822
  2. PLAVIX [Concomitant]
  3. ASPIRIN [Concomitant]
  4. METFORMIN HCL [Concomitant]
  5. GLIPIZIDE [Concomitant]
  6. AVAPRO [Concomitant]

REACTIONS (1)
  - POLYARTHRITIS [None]
